FAERS Safety Report 11379148 (Version 1)
Quarter: 2015Q3

REPORT INFORMATION
  Report Type: Spontaneous
  Country: US (occurrence: None)
  Receive Date: 20150813
  Receipt Date: 20150813
  Transmission Date: 20151125
  Serious: No
  Sender: FDA-Public Use
  Company Number: None

PATIENT
  Age: 81 Year
  Sex: Female
  Weight: 74.84 kg

DRUGS (6)
  1. CALCIUM [Concomitant]
     Active Substance: CALCIUM
  2. IBUPROFEN. [Concomitant]
     Active Substance: IBUPROFEN
  3. MULTIVITAM [Concomitant]
  4. D3 [Concomitant]
     Active Substance: 25-HYDROXYCHOLECALCIFEROL, 5-TRANS-
  5. LORAZEPAM. [Concomitant]
     Active Substance: LORAZEPAM
  6. MOXIFLOXACIN HCL 400 MG ALVOGNANCY [Suspect]
     Active Substance: MOXIFLOXACIN
     Indication: BRONCHITIS
     Route: 048
     Dates: start: 20150524, end: 20150601

REACTIONS (4)
  - Pain in extremity [None]
  - Musculoskeletal disorder [None]
  - Tension [None]
  - Tendon pain [None]
